FAERS Safety Report 20637082 (Version 1)
Quarter: 2022Q1

REPORT INFORMATION
  Report Type: Spontaneous
  Country: US (occurrence: US)
  Receive Date: 20220325
  Receipt Date: 20220325
  Transmission Date: 20220423
  Serious: No
  Sender: FDA-Public Use
  Company Number: US-009507513-2203USA005649

PATIENT
  Age: 26 Year
  Sex: Male

DRUGS (11)
  1. CUBICIN [Suspect]
     Active Substance: DAPTOMYCIN
     Indication: Staphylococcal infection
     Dosage: 6 MG/KG PER DAY, DOSING WEIGHT OF 50 KG
     Route: 042
  2. CUBICIN [Suspect]
     Active Substance: DAPTOMYCIN
     Indication: Empyema
  3. CUBICIN [Suspect]
     Active Substance: DAPTOMYCIN
     Indication: Pleural effusion
  4. NALOXONE [Concomitant]
     Active Substance: NALOXONE
     Indication: Drug abuse
  5. VANCOMYCIN [Concomitant]
     Active Substance: VANCOMYCIN
     Dosage: 1500 MILLIGRAM, Q8H (25 MG/KG, DOSING WEIGHT OF 60 KG)
     Route: 042
  6. PIPERACILLIN AND TAZOBACTAM [Concomitant]
     Active Substance: PIPERACILLIN SODIUM\TAZOBACTAM SODIUM
     Dosage: 3.375 MG EVERY 8 HOURS AT 25 ML PER HOUR
     Route: 042
  7. BICTEGRAVIR [Concomitant]
     Active Substance: BICTEGRAVIR
     Indication: HIV infection
  8. EMTRICITABINE [Concomitant]
     Active Substance: EMTRICITABINE
     Indication: HIV infection
  9. TENOFOVIR ALAFENAMIDE [Concomitant]
     Active Substance: TENOFOVIR ALAFENAMIDE
     Indication: HIV infection
  10. METHADONE [Concomitant]
     Active Substance: METHADONE HYDROCHLORIDE
     Indication: Drug abuse
     Dosage: 30 MG DAILY WITH 10 MG AS NEEDED FOR WITHDRAWAL SYMPTOMS
  11. HEROIN [Concomitant]
     Active Substance: DIAMORPHINE
     Route: 042

REACTIONS (1)
  - Off label use [Unknown]
